FAERS Safety Report 7326791-8 (Version None)
Quarter: 2011Q1

REPORT INFORMATION
  Report Type: 
  Country: None (occurrence: None)
  Receive Date: 20110302
  Receipt Date: 20100610
  Transmission Date: 20110831
  Serious: No
  Sender: FDA-Public Use
  Company Number: US-PFIZER INC-2010073734

PATIENT

DRUGS (1)
  1. DILANTIN [Suspect]
     Dosage: 50 MG, 2X/DAY
     Route: 048

REACTIONS (1)
  - DRUG ADMINISTRATION ERROR [None]
